FAERS Safety Report 11572715 (Version 1)
Quarter: 2015Q3

REPORT INFORMATION
  Report Type: Spontaneous
  Country: SE (occurrence: SE)
  Receive Date: 20150929
  Receipt Date: 20150929
  Transmission Date: 20151125
  Serious: Yes (Death)
  Sender: FDA-Public Use
  Company Number: SE-009507513-1509SWE012602

PATIENT
  Age: 60 Year
  Sex: Male

DRUGS (21)
  1. NOVOMIX 30 [Concomitant]
     Active Substance: INSULIN ASPART
     Dosage: FLEX PEN
  2. FRAGMIN [Concomitant]
     Active Substance: DALTEPARIN SODIUM
  3. XYLOPROCT [Concomitant]
  4. REBETOL [Suspect]
     Active Substance: RIBAVIRIN
     Dosage: 400 MG, BID
     Dates: start: 20150610, end: 20150708
  5. ONDANSETRON HYDROCHLORIDE. [Concomitant]
     Active Substance: ONDANSETRON HYDROCHLORIDE
  6. LAXOBERAL [Concomitant]
     Active Substance: SODIUM PICOSULFATE
  7. LACTULOSE. [Concomitant]
     Active Substance: LACTULOSE
  8. PIPERACILLIN AND TAZOBACTAM [Concomitant]
     Active Substance: PIPERACILLIN SODIUM\TAZOBACTAM SODIUM
  9. REBETOL [Suspect]
     Active Substance: RIBAVIRIN
     Dosage: 400 MG, BID
     Dates: start: 20150813, end: 20150816
  10. SOVALDI [Suspect]
     Active Substance: SOFOSBUVIR
     Indication: HEPATITIS C
     Dosage: 400 MG, QD
     Route: 048
     Dates: start: 20150527, end: 20150905
  11. OMEPRAZOLE. [Concomitant]
     Active Substance: OMEPRAZOLE
  12. FURIX [Concomitant]
     Active Substance: FUROSEMIDE
  13. MEROPENEM. [Concomitant]
     Active Substance: MEROPENEM
  14. DAKLINZA [Suspect]
     Active Substance: DACLATASVIR
     Indication: HEPATITIS C
     Dosage: 60 MG, QD
     Route: 048
     Dates: start: 20150527, end: 20150905
  15. PRIMPERAN [Concomitant]
     Active Substance: METOCLOPRAMIDE HYDROCHLORIDE
  16. REBETOL [Suspect]
     Active Substance: RIBAVIRIN
     Indication: HEPATITIS C
     Dosage: 600 MG, BID
     Route: 048
     Dates: start: 20150527, end: 20150609
  17. SPIRONOLACTONE. [Concomitant]
     Active Substance: SPIRONOLACTONE
  18. INDERAL [Concomitant]
     Active Substance: PROPRANOLOL HYDROCHLORIDE
  19. REBETOL [Suspect]
     Active Substance: RIBAVIRIN
     Dosage: 2+0+1
     Dates: start: 20150709, end: 20150812
  20. WARAN [Concomitant]
     Active Substance: WARFARIN SODIUM
     Dosage: UNK
     Dates: start: 201507, end: 20150816
  21. SUNVEPRA [Suspect]
     Active Substance: ASUNAPREVIR

REACTIONS (3)
  - Hepatorenal syndrome [None]
  - Hepatic cirrhosis [Fatal]
  - Pneumococcal sepsis [None]

NARRATIVE: CASE EVENT DATE: 20150816
